FAERS Safety Report 23646555 (Version 1)
Quarter: 2024Q1

REPORT INFORMATION
  Report Type: Spontaneous
  Country: FR (occurrence: FR)
  Receive Date: 20240319
  Receipt Date: 20240319
  Transmission Date: 20240410
  Serious: Yes (Life-Threatening, Hospitalization, Other)
  Sender: FDA-Public Use
  Company Number: FR-PFIZER INC-PV202400027307

PATIENT
  Age: 17 Month
  Sex: Female

DRUGS (28)
  1. DIAZEPAM [Suspect]
     Active Substance: DIAZEPAM
     Indication: Dystonia
     Dosage: 0.5 MILLIGRAM/KILOGRAM
     Route: 065
     Dates: start: 20150413
  2. DIAZEPAM [Suspect]
     Active Substance: DIAZEPAM
     Indication: Tongue biting
  3. HYDROXYZINE [Suspect]
     Active Substance: HYDROXYZINE HYDROCHLORIDE
     Indication: Dystonia
     Dosage: UNK
     Route: 065
     Dates: start: 20150414
  4. HYDROXYZINE [Suspect]
     Active Substance: HYDROXYZINE HYDROCHLORIDE
     Indication: Tongue biting
  5. FOSPHENYTOIN [Suspect]
     Active Substance: FOSPHENYTOIN
     Indication: Dystonia
     Dosage: 15 MILLIGRAM/KILOGRAM
     Route: 065
     Dates: start: 20150413
  6. FOSPHENYTOIN [Suspect]
     Active Substance: FOSPHENYTOIN
     Indication: Tongue biting
  7. ACETAMINOPHEN [Suspect]
     Active Substance: ACETAMINOPHEN
     Indication: Tongue biting
     Dosage: UNK
     Route: 065
     Dates: start: 20150412
  8. ACETAMINOPHEN [Suspect]
     Active Substance: ACETAMINOPHEN
     Indication: Dystonia
  9. ARTANE [Suspect]
     Active Substance: TRIHEXYPHENIDYL HYDROCHLORIDE
     Indication: Tongue biting
     Dosage: UNK
     Route: 065
     Dates: start: 201504
  10. ARTANE [Suspect]
     Active Substance: TRIHEXYPHENIDYL HYDROCHLORIDE
     Indication: Dystonia
  11. OXCARBAZEPINE [Suspect]
     Active Substance: OXCARBAZEPINE
     Indication: Dystonia
     Dosage: UNK
     Route: 065
     Dates: start: 201504
  12. OXCARBAZEPINE [Suspect]
     Active Substance: OXCARBAZEPINE
     Indication: Tongue biting
  13. OXCARBAZEPINE [Suspect]
     Active Substance: OXCARBAZEPINE
     Indication: Sedation
  14. OXCARBAZEPINE [Suspect]
     Active Substance: OXCARBAZEPINE
     Indication: Analgesic therapy
  15. MORPHINE [Suspect]
     Active Substance: MORPHINE
     Indication: Dystonia
     Dosage: UNK
     Route: 065
     Dates: start: 20150412
  16. MORPHINE [Suspect]
     Active Substance: MORPHINE
     Indication: Tongue biting
  17. CLONAZEPAM [Suspect]
     Active Substance: CLONAZEPAM
     Indication: Dystonia
     Dosage: 0.05 MILLIGRAM, ONCE A DAY
     Route: 065
     Dates: start: 201504
  18. CLONAZEPAM [Suspect]
     Active Substance: CLONAZEPAM
     Indication: Tongue biting
     Dosage: 0.1 MILLIGRAM, ONCE A DAY
     Route: 065
     Dates: start: 201504
  19. CLONAZEPAM [Suspect]
     Active Substance: CLONAZEPAM
     Indication: Sedation
  20. CLONAZEPAM [Suspect]
     Active Substance: CLONAZEPAM
     Indication: Analgesic therapy
  21. SUFENTANIL [Concomitant]
     Active Substance: SUFENTANIL
     Indication: Sedation
     Dosage: UNK
     Route: 065
     Dates: start: 201504
  22. XENAZINE [Concomitant]
     Active Substance: TETRABENAZINE
     Indication: Tongue biting
     Dosage: UNK
     Route: 065
     Dates: start: 20150430
  23. XENAZINE [Concomitant]
     Active Substance: TETRABENAZINE
     Indication: Dystonia
     Dosage: 5.8 MILLIGRAM/KILOGRAM, ONCE A DAY, LESS THAN OR EQUAL TO 5.8 MG/KG PER DAY
     Route: 065
  24. MIDAZOLAM [Concomitant]
     Active Substance: MIDAZOLAM
     Indication: Sedation
     Dosage: UNK
     Route: 065
     Dates: start: 201504
  25. AMOXICILLIN\CLAVULANIC ACID [Concomitant]
     Active Substance: AMOXICILLIN\CLAVULANIC ACID
     Indication: Encephalitis
     Dosage: UNK
     Route: 065
     Dates: start: 20150413
  26. ACYCLOVIR [Concomitant]
     Active Substance: ACYCLOVIR
     Indication: Encephalitis
     Dosage: UNK
     Route: 065
     Dates: start: 20150413
  27. LEVODOPA [Concomitant]
     Active Substance: LEVODOPA
     Indication: Dystonia
     Dosage: LESS THAN OR EQUAL TO 3 MG/KG, DAILY
     Route: 065
     Dates: start: 20150430
  28. LEVODOPA [Concomitant]
     Active Substance: LEVODOPA
     Indication: Tongue biting

REACTIONS (2)
  - Drug ineffective [Recovering/Resolving]
  - Off label use [Unknown]
